FAERS Safety Report 12610642 (Version 1)
Quarter: 2016Q3

REPORT INFORMATION
  Report Type: Spontaneous
  Country: US (occurrence: None)
  Receive Date: 20160729
  Receipt Date: 20160729
  Transmission Date: 20161109
  Serious: Yes (Other)
  Sender: FDA-Public Use
  Company Number: None

PATIENT
  Age: 39 Year
  Sex: Male

DRUGS (2)
  1. BUPROPION SR [Suspect]
     Active Substance: BUPROPION
     Indication: TOBACCO USER
     Route: 048
  2. WELLBUTRIN SR [Suspect]
     Active Substance: BUPROPION HYDROCHLORIDE
     Indication: TOBACCO USER
     Route: 048

REACTIONS (2)
  - Nausea [None]
  - Dizziness [None]

NARRATIVE: CASE EVENT DATE: 20160720
